FAERS Safety Report 6144704-1 (Version None)
Quarter: 2009Q2

REPORT INFORMATION
  Report Type: 
  Country: None (occurrence: None)
  Receive Date: 20090406
  Receipt Date: 20090327
  Transmission Date: 20091009
  Serious: Yes (Other)
  Sender: FDA-Public Use
  Company Number: B0568178A

PATIENT
  Sex: Female

DRUGS (1)
  1. ARIXTRA [Suspect]
     Dosage: 7.5MG PER DAY
     Route: 058
     Dates: end: 20090101

REACTIONS (3)
  - ANGIOEDEMA [None]
  - DERMATITIS ALLERGIC [None]
  - OFF LABEL USE [None]
